APPROVED DRUG PRODUCT: ETODOLAC
Active Ingredient: ETODOLAC
Strength: 400MG
Dosage Form/Route: TABLET;ORAL
Application: A208834 | Product #001 | TE Code: AB
Applicant: AMNEAL PHARMACEUTICALS CO GMBH
Approved: Jun 7, 2018 | RLD: No | RS: No | Type: RX